FAERS Safety Report 9726064 (Version 1)
Quarter: 2013Q4

REPORT INFORMATION
  Report Type: Spontaneous
  Country: TR (occurrence: TR)
  Receive Date: 20131203
  Receipt Date: 20131203
  Transmission Date: 20140711
  Serious: Yes (Death)
  Sender: FDA-Public Use
  Company Number: TR-BAYER-2013-144490

PATIENT
  Age: 44 Year
  Sex: Female
  Weight: 75 kg

DRUGS (6)
  1. ASPIRIN [Suspect]
     Dosage: 100 MG, UNK
  2. CORDARONE [Suspect]
     Dosage: 200 MG, UNK
  3. BELOC [Suspect]
     Dosage: 100 MG, UNK
  4. RYTMONORM [Suspect]
     Dosage: 300 MG, UNK
  5. COUMADIN [Concomitant]
     Dosage: 5 MG, UNK
  6. DIGOXIN [Concomitant]
     Dosage: 0.125 MG, QD

REACTIONS (1)
  - Death [Fatal]
